FAERS Safety Report 18616118 (Version 1)
Quarter: 2020Q4

REPORT INFORMATION
  Report Type: Spontaneous
  Country: AU (occurrence: AU)
  Receive Date: 20201215
  Receipt Date: 20201215
  Transmission Date: 20210114
  Serious: Yes (Other)
  Sender: FDA-Public Use
  Company Number: AU-SUN PHARMACEUTICAL INDUSTRIES LTD-2020RR-271288

PATIENT
  Age: 22 Year
  Sex: Male

DRUGS (7)
  1. PARACETAMOL [Suspect]
     Active Substance: ACETAMINOPHEN
     Indication: SPINAL CORD INJURY
     Dosage: UNK
     Route: 065
  2. GABAPENTIN. [Suspect]
     Active Substance: GABAPENTIN
     Dosage: 1800 MILLIGRAM, DAILY
     Route: 048
  3. AMITRIPTYLINE [Suspect]
     Active Substance: AMITRIPTYLINE
     Dosage: 25 MILLIGRAM, DAILY
     Route: 048
  4. METHADONE [Suspect]
     Active Substance: METHADONE HYDROCHLORIDE
     Indication: SPINAL CORD INJURY
     Dosage: 20 MILLIGRAM, QD
     Route: 048
  5. OXYCODONE [Suspect]
     Active Substance: OXYCODONE
     Indication: SPINAL CORD INJURY
     Dosage: UNK
     Route: 048
  6. AMITRIPTYLINE [Suspect]
     Active Substance: AMITRIPTYLINE
     Indication: SPINAL CORD INJURY
     Dosage: 50 MILLIGRAM, DAILY
     Route: 048
  7. GABAPENTIN. [Suspect]
     Active Substance: GABAPENTIN
     Indication: SPINAL CORD INJURY
     Dosage: 3600 MILLIGRAM, DAILY
     Route: 048

REACTIONS (2)
  - Drug resistance [Unknown]
  - Therapeutic product effect incomplete [Unknown]
